FAERS Safety Report 5884806-8 (Version None)
Quarter: 2008Q3

REPORT INFORMATION
  Report Type: 
  Country: None (occurrence: None)
  Receive Date: 20080916
  Receipt Date: 20080904
  Transmission Date: 20090109
  Serious: Yes (Hospitalization)
  Sender: FDA-Public Use
  Company Number: CA-ELI_LILLY_AND_COMPANY-CA200809001212

PATIENT
  Age: 84 Year
  Sex: Female

DRUGS (5)
  1. FORTEO [Suspect]
     Indication: OSTEOPOROSIS
     Dosage: 20 UG, DAILY (1/D)
     Route: 058
     Dates: start: 20070906, end: 20080828
  2. MIRTAZAPINE [Concomitant]
     Dosage: 15 MG, DAILY (1/D)
  3. PREVACID [Concomitant]
     Dosage: 15 MG, DAILY (1/D)
  4. APO-LEVOCARB [Concomitant]
     Dosage: UNK, 3/D
  5. ROCALTROL [Concomitant]
     Dosage: 25 UG, UNK

REACTIONS (3)
  - ARTHRALGIA [None]
  - FATIGUE [None]
  - HOSPITALISATION [None]
